FAERS Safety Report 23911871 (Version 1)
Quarter: 2024Q2

REPORT INFORMATION
  Report Type: Spontaneous
  Country: IL (occurrence: IL)
  Receive Date: 20240528
  Receipt Date: 20240528
  Transmission Date: 20240716
  Serious: Yes (Other)
  Sender: FDA-Public Use
  Company Number: IL-AMERICAN REGENT INC-2024002009

PATIENT
  Sex: Female

DRUGS (1)
  1. FERINJECT [Suspect]
     Active Substance: FERRIC CARBOXYMALTOSE
     Indication: Product used for unknown indication
     Dosage: UNK
     Route: 042
     Dates: start: 20240516, end: 20240516

REACTIONS (5)
  - Pain in extremity [Unknown]
  - Muscle spasms [Unknown]
  - Chest pain [Unknown]
  - Erythema [Unknown]
  - Back pain [Unknown]

NARRATIVE: CASE EVENT DATE: 20240501
